FAERS Safety Report 9166193 (Version 1)
Quarter: 2013Q1

REPORT INFORMATION
  Report Type: Spontaneous
  Country: DK (occurrence: None)
  Receive Date: 20130301
  Receipt Date: 20130301
  Transmission Date: 20140127
  Serious: Yes (Other)
  Sender: FDA-Public Use
  Company Number: FK201300633

PATIENT
  Age: 52 Year
  Sex: Female

DRUGS (8)
  1. OXALIPLATIN [Suspect]
     Dates: start: 201111
  2. VINORELBINE [Suspect]
     Dates: start: 200901
  3. HERCEPTIN [Suspect]
     Route: 042
     Dates: start: 200901
  4. XELODA [Suspect]
     Route: 048
     Dates: start: 201110
  5. TAXOTERE [Suspect]
     Dates: start: 201008
  6. ZOMETA [Suspect]
     Dates: start: 201008
  7. FEMAR [Suspect]
     Dates: start: 201107
  8. LAPATINIB [Suspect]
     Dates: start: 201211

REACTIONS (2)
  - Breast cancer [None]
  - Malignant neoplasm progression [None]
